FAERS Safety Report 6491384-1 (Version None)
Quarter: 2009Q4

REPORT INFORMATION
  Report Type: 
  Country: None (occurrence: None)
  Receive Date: 20091208
  Receipt Date: 20091202
  Transmission Date: 20100525
  Serious: Yes (Hospitalization, Other)
  Sender: FDA-Public Use
  Company Number: SPV1-2009-02452

PATIENT
  Age: 62 Year
  Sex: Male

DRUGS (2)
  1. FOSRENOL [Suspect]
     Indication: HYPERPHOSPHATAEMIA
     Dosage: ORAL
     Route: 048
     Dates: start: 20091001
  2. FOSRENOL [Suspect]
     Indication: RENAL FAILURE
     Dosage: ORAL
     Route: 048
     Dates: start: 20091001

REACTIONS (3)
  - FALL [None]
  - HEART RATE IRREGULAR [None]
  - THROMBOSIS [None]
